FAERS Safety Report 5638349-7 (Version None)
Quarter: 2008Q1

REPORT INFORMATION
  Report Type: 
  Country: None (occurrence: None)
  Receive Date: 20080226
  Receipt Date: 20080214
  Transmission Date: 20080703
  Serious: Yes (Hospitalization)
  Sender: FDA-Public Use
  Company Number: GB-AMGEN-US266168

PATIENT
  Sex: Female
  Weight: 75 kg

DRUGS (12)
  1. ENBREL [Suspect]
     Indication: RHEUMATOID ARTHRITIS
     Route: 058
     Dates: start: 20050118
  2. CYCLOPHOSPHAMIDE [Concomitant]
     Dosage: UNKNOWN
     Route: 065
  3. PREDNISOLONE [Concomitant]
     Dosage: UNKNOWN
     Route: 065
  4. ASPIRIN [Concomitant]
     Dosage: UNKNOWN
     Route: 065
  5. NIFEDIPINE [Concomitant]
     Dosage: UNKNOWN
     Route: 065
  6. CO-PROXAMOL [Concomitant]
     Dosage: UNKNOWN
     Route: 065
  7. ETIDRONATE DISODIUM [Concomitant]
     Dosage: UNKNOWN
     Route: 065
  8. FOLIC ACID [Concomitant]
     Dosage: UNKNOWN
     Route: 065
  9. MISOPROSTOL [Concomitant]
     Dosage: UNKNOWN
     Route: 065
  10. CYCLOSPORINE [Concomitant]
     Dosage: UNKNOWN
     Route: 065
  11. METHOTREXATE [Concomitant]
     Dosage: UNKNOWN
     Route: 065
  12. ATORVASTATIN CALCIUM [Concomitant]
     Dosage: UNKNOWN
     Route: 065

REACTIONS (2)
  - RASH PRURITIC [None]
  - WHITE BLOOD CELL COUNT INCREASED [None]
